FAERS Safety Report 8177667-8 (Version None)
Quarter: 2012Q1

REPORT INFORMATION
  Report Type: 
  Country: None (occurrence: None)
  Receive Date: 20120301
  Receipt Date: 20120224
  Transmission Date: 20120608
  Serious: Yes (Death, Other)
  Sender: FDA-Public Use
  Company Number: PHHY2012JP006824

PATIENT
  Age: 84 Year
  Sex: Female

DRUGS (3)
  1. RASILEZ [Suspect]
     Indication: HYPERTENSION
     Dosage: 150 MG, DAILY
     Route: 048
     Dates: start: 20111001
  2. AVAPRO [Concomitant]
     Route: 048
     Dates: start: 20110809
  3. SITAGLIPTIN PHOSPHATE [Concomitant]
     Route: 048
     Dates: start: 20100310

REACTIONS (2)
  - FALL [None]
  - MYOCARDIAL INFARCTION [None]
